FAERS Safety Report 5496166-5 (Version None)
Quarter: 2007Q4

REPORT INFORMATION
  Report Type: 
  Country: None (occurrence: None)
  Receive Date: 20071023
  Receipt Date: 20071023
  Transmission Date: 20080405
  Serious: Yes (Other)
  Sender: FDA-Public Use
  Company Number: None

PATIENT
  Age: 77 Year
  Sex: Male
  Weight: 85.7298 kg

DRUGS (1)
  1. EPOGEN [Suspect]
     Indication: RENAL FAILURE
     Dosage: 11,000 UNITS TWICE A WEEK IV
     Route: 042
     Dates: start: 20071001, end: 20071022

REACTIONS (4)
  - HYPERAESTHESIA [None]
  - INCORRECT DOSE ADMINISTERED [None]
  - MALAISE [None]
  - PAIN [None]
